FAERS Safety Report 11089823 (Version 3)
Quarter: 2015Q2

REPORT INFORMATION
  Report Type: Spontaneous
  Country: JP (occurrence: None)
  Receive Date: 20150501
  Receipt Date: 20150501
  Transmission Date: 20150821
  Serious: Yes (Hospitalization)
  Sender: FDA-Public Use
  Company Number: 2015JP000347

PATIENT
  Age: 80 Year
  Sex: Male

DRUGS (5)
  1. LEXOTAN (BROMAZEPAM) [Concomitant]
  2. REGNITE (GABAPENTIN ENACARBIL) TABLET, 300 MG [Suspect]
     Active Substance: GABAPENTIN ENACARBIL
     Indication: PRODUCT USED FOR UNKNOWN INDICATION
     Dosage: 600 MG, ONCE DAILY, UNKNOWN
     Dates: end: 20150105
  3. FLUNITRAZEPAM [Concomitant]
     Active Substance: FLUNITRAZEPAM
  4. NEODOPASOL (BENSERAZIDE HYDROCHLORIDE, LEVODOPA) [Concomitant]
  5. SULPIRID (SULPIRIDE) [Concomitant]

REACTIONS (6)
  - Fall [None]
  - Cerebral disorder [None]
  - Intentional product misuse [None]
  - Aphasia [None]
  - Disease recurrence [None]
  - Seizure [None]

NARRATIVE: CASE EVENT DATE: 20150105
